FAERS Safety Report 13570734 (Version 2)
Quarter: 2018Q2

REPORT INFORMATION
  Report Type: Spontaneous
  Country: US (occurrence: US)
  Receive Date: 20170523
  Receipt Date: 20180529
  Transmission Date: 20180711
  Serious: No
  Sender: FDA-Public Use
  Company Number: US-BAUSCH-BL-2016-022430

PATIENT
  Sex: Male
  Weight: 79.45 kg

DRUGS (12)
  1. ASPIRIN. [Concomitant]
     Active Substance: ASPIRIN
     Indication: CARDIAC DISORDER
     Route: 048
  2. SERTRALINE [Concomitant]
     Active Substance: SERTRALINE HYDROCHLORIDE
     Indication: ANXIETY
     Dosage: AS NEEDED
     Route: 048
  3. MIDODRINE [Concomitant]
     Active Substance: MIDODRINE
     Indication: HYPERTENSION
     Route: 048
  4. AMIODARONE [Concomitant]
     Active Substance: AMIODARONE
     Indication: CARDIAC DISORDER
  5. IMURAN [Concomitant]
     Active Substance: AZATHIOPRINE
     Indication: MYASTHENIA GRAVIS
     Route: 048
  6. CALCIUM [Concomitant]
     Active Substance: CALCIUM
     Indication: MINERAL SUPPLEMENTATION
     Route: 048
  7. MESTINON [Suspect]
     Active Substance: PYRIDOSTIGMINE BROMIDE
     Route: 048
     Dates: start: 2017
  8. MESTINON [Suspect]
     Active Substance: PYRIDOSTIGMINE BROMIDE
     Route: 048
     Dates: start: 201701
  9. DIALYVITE [Concomitant]
     Active Substance: ASCORBIC ACID\BIOTIN\CALCIUM PANTOTHENATE\COBALAMIN\FOLIC ACID\NIACINAMIDE\PYRIDOXINE HYDROCHLORIDE\RIBOFLAVIN\THIAMINE MONONITRATE
     Indication: DIALYSIS
  10. MESTINON [Suspect]
     Active Substance: PYRIDOSTIGMINE BROMIDE
     Indication: MYASTHENIA GRAVIS
     Dosage: ONE TABLET
     Route: 048
     Dates: start: 1995
  11. MESTINON [Suspect]
     Active Substance: PYRIDOSTIGMINE BROMIDE
     Route: 048
     Dates: start: 2016
  12. OXYCODONE [Concomitant]
     Active Substance: OXYCODONE
     Indication: PRODUCT USED FOR UNKNOWN INDICATION

REACTIONS (5)
  - Dysphagia [Not Recovered/Not Resolved]
  - Drug ineffective [Unknown]
  - Eyelid ptosis [Not Recovered/Not Resolved]
  - Visual impairment [Not Recovered/Not Resolved]
  - Choking [Not Recovered/Not Resolved]

NARRATIVE: CASE EVENT DATE: 2016
